FAERS Safety Report 9925105 (Version 1)
Quarter: 2014Q1

REPORT INFORMATION
  Report Type: Spontaneous
  Country: US (occurrence: None)
  Receive Date: 20140225
  Receipt Date: 20140225
  Transmission Date: 20141002
  Serious: Yes (Other)
  Sender: FDA-Public Use
  Company Number: None

PATIENT
  Age: 52 Year
  Sex: Female
  Weight: 115.21 kg

DRUGS (1)
  1. WELLBUTRIN XR [Suspect]
     Dosage: TAKE 1 TABLET IN AM DAILY
     Route: 048
     Dates: start: 20140224

REACTIONS (7)
  - Influenza like illness [None]
  - Myalgia [None]
  - Migraine [None]
  - Palpitations [None]
  - Oedema peripheral [None]
  - Feeling jittery [None]
  - Hangover [None]
